FAERS Safety Report 6986496-X (Version None)
Quarter: 2010Q3

REPORT INFORMATION
  Report Type: 
  Country: None (occurrence: None)
  Receive Date: 20100913
  Receipt Date: 20100827
  Transmission Date: 20110219
  Serious: Yes (Other)
  Sender: FDA-Public Use
  Company Number: 2010003696

PATIENT
  Age: 62 Year
  Sex: Female

DRUGS (2)
  1. ERLOTINIB HYDROCHLORIDE [Suspect]
     Indication: PANCREATIC CARCINOMA METASTATIC
     Dosage: (100 MG), ORAL
     Route: 048
     Dates: start: 20100203, end: 20100825
  2. GEMCITABINE [Suspect]
     Indication: PANCREATIC CARCINOMA METASTATIC
     Dosage: (750 MG/M2,QW), INTRAVENOUS
     Route: 042
     Dates: start: 20100203, end: 20100825

REACTIONS (4)
  - DIARRHOEA [None]
  - FATIGUE [None]
  - HYPOTENSION [None]
  - RENAL TUBULAR NECROSIS [None]
